FAERS Safety Report 20567736 (Version 1)
Quarter: 2022Q1

REPORT INFORMATION
  Report Type: Spontaneous
  Country: DE (occurrence: DE)
  Receive Date: 20220308
  Receipt Date: 20220308
  Transmission Date: 20220424
  Serious: Yes (Hospitalization, Other)
  Sender: FDA-Public Use
  Company Number: DE-PFIZER INC-202101775626

PATIENT
  Age: 90 Year
  Sex: Female
  Weight: 55 kg

DRUGS (8)
  1. GABAPENTIN [Suspect]
     Active Substance: GABAPENTIN
     Indication: Epilepsy
     Dosage: UNK
     Dates: start: 20200720
  2. NEURONTIN [Suspect]
     Active Substance: GABAPENTIN
     Indication: Seizure
     Dosage: 600 MILLIGRAM, QD (300 MG, 2X/DAY (IN THE MORNING AND IN THE EVENING)
     Dates: start: 202009
  3. NEURONTIN [Suspect]
     Active Substance: GABAPENTIN
     Dosage: 900 MILLIGRAM, QD (300 MG, 3X/DAY)
     Dates: start: 202112
  4. METOPROLOL SUCCINATE [Concomitant]
     Active Substance: METOPROLOL SUCCINATE
     Indication: Blood pressure abnormal
     Dosage: 47.5 MILLIGRAM, QD (47.5 MG, 1X/DAY)
     Dates: start: 2002
  5. ATACAND [Concomitant]
     Active Substance: CANDESARTAN CILEXETIL
     Indication: Blood pressure abnormal
     Dosage: UNK UNK, QD (8/12.5 UNK, 1X/DAY)
     Dates: start: 2002
  6. NEXIUM [Concomitant]
     Active Substance: ESOMEPRAZOLE MAGNESIUM
     Dosage: 20 MILLIGRAM, QD (20 MG, 1X/DAY)
     Dates: start: 2007
  7. ASPIRIN [Concomitant]
     Active Substance: ASPIRIN
     Indication: Blood pressure abnormal
     Dosage: 100 MILLIGRAM, QD (100 MG, 1X/DAY)
     Dates: start: 2012
  8. ATORVASTATIN [Concomitant]
     Active Substance: ATORVASTATIN
     Dosage: 10 MILLIGRAM, QD (10 MG, 1X/DAY)
     Dates: start: 2018

REACTIONS (14)
  - Shock [Recovered/Resolved]
  - Gallbladder operation [Unknown]
  - Oxygen saturation decreased [Unknown]
  - Constipation [Unknown]
  - Loss of consciousness [Unknown]
  - Coma [Unknown]
  - Overdose [Unknown]
  - Dementia [Unknown]
  - Stress [Unknown]
  - Urinary tract infection [Unknown]
  - Headache [Unknown]
  - Asthenia [Unknown]
  - Fall [Not Recovered/Not Resolved]
  - Drug ineffective [Unknown]

NARRATIVE: CASE EVENT DATE: 20200726
